FAERS Safety Report 11327426 (Version 1)
Quarter: 2015Q3

REPORT INFORMATION
  Report Type: Spontaneous
  Country: US (occurrence: None)
  Receive Date: 20150730
  Receipt Date: 20150730
  Transmission Date: 20151125
  Serious: No
  Sender: FDA-Public Use
  Company Number: None

PATIENT
  Age: 51 Year
  Sex: Female

DRUGS (6)
  1. LOSARTAN. [Suspect]
     Active Substance: LOSARTAN
     Indication: HYPERTENSION
     Route: 048
     Dates: end: 20150203
  2. CARVEDILOL. [Concomitant]
     Active Substance: CARVEDILOL
  3. CINACALCET [Suspect]
     Active Substance: CINACALCET
     Route: 048
  4. GABAPENTIN. [Concomitant]
     Active Substance: GABAPENTIN
  5. WARFARIN [Concomitant]
     Active Substance: WARFARIN
  6. MULTIVITAMIN [Concomitant]
     Active Substance: VITAMINS

REACTIONS (4)
  - Pyrexia [None]
  - Blood potassium increased [None]
  - Malaise [None]
  - Dyspnoea [None]

NARRATIVE: CASE EVENT DATE: 20150204
